FAERS Safety Report 6301053-6 (Version None)
Quarter: 2009Q3

REPORT INFORMATION
  Report Type: 
  Country: None (occurrence: None)
  Receive Date: 20090807
  Receipt Date: 20080328
  Transmission Date: 20100115
  Serious: Yes (Other)
  Sender: FDA-Public Use
  Company Number: US-ASTRAZENECA-2007UW25223

PATIENT
  Age: 651 Month
  Sex: Male
  Weight: 135.6 kg

DRUGS (23)
  1. SEROQUEL [Suspect]
     Indication: BIPOLAR DISORDER
     Route: 048
     Dates: start: 20001101
  2. SEROQUEL [Suspect]
     Dosage: 200-300 MG, AT NIGHT
     Route: 048
  3. LASIX [Concomitant]
     Route: 048
     Dates: start: 19791231
  4. AVANDIA [Concomitant]
     Dates: start: 19791231
  5. GEMFIBROZIL [Concomitant]
     Dates: start: 19791231
  6. NEXIUM [Concomitant]
     Dates: start: 19791231
  7. PRIMIDONE [Concomitant]
     Indication: TREMOR
     Dates: start: 19791231
  8. WARFARIN SODIUM [Concomitant]
     Dates: start: 19791231
  9. GLIPIZIDE [Concomitant]
     Dosage: 2.5-10 MG
     Dates: start: 19791231
  10. LITHIUM CARBONATE [Concomitant]
     Dosage: 300 MG, 2 TABLETS, TWICE DAILY
     Dates: start: 19791231
  11. AMBIEN [Concomitant]
     Dates: start: 19791231
  12. BUSPAR [Concomitant]
     Dosage: 15-30 MG, DAILY
     Dates: start: 19791231
  13. ALLOPURINOL [Concomitant]
     Indication: GOUT
     Dates: start: 19791231
  14. LISINOPRIL [Concomitant]
     Dates: start: 19791231
  15. NEURONTIN [Concomitant]
     Dosage: 100-600 MG
     Dates: start: 20060308
  16. LEVOXYL [Concomitant]
     Indication: TREMOR
     Dates: start: 20060308
  17. KLONOPIN [Concomitant]
     Dosage: 0.5-1.5 MG
     Dates: start: 20060717
  18. WELLBUTRIN [Concomitant]
     Dates: start: 20060308
  19. ENALAPRIL MALEATE [Concomitant]
     Dates: start: 20080117
  20. REMERON [Concomitant]
     Dates: start: 20080117
  21. RISPERDAL [Concomitant]
     Dosage: 0.5 MG, ONE TAB IN MORNING, 2 TABS AT NIGHT
     Dates: start: 20080117
  22. PROPRANOLOL [Concomitant]
     Dosage: 10-20 MG
     Dates: start: 20080117
  23. LORAZEPAM [Concomitant]
     Dosage: 1 MG 2 TABS DAILY
     Dates: start: 20080117

REACTIONS (6)
  - DIABETES MELLITUS [None]
  - DIABETES MELLITUS INADEQUATE CONTROL [None]
  - DIABETIC COMPLICATION [None]
  - DIABETIC NEUROPATHY [None]
  - NEUROPATHY PERIPHERAL [None]
  - TYPE 2 DIABETES MELLITUS [None]
